FAERS Safety Report 6370124-0 (Version None)
Quarter: 2009Q3

REPORT INFORMATION
  Report Type: 
  Country: None (occurrence: None)
  Receive Date: 20090923
  Receipt Date: 20070927
  Transmission Date: 20100115
  Serious: Yes (Other)
  Sender: FDA-Public Use
  Company Number: US-ASTRAZENECA-2006UW22214

PATIENT
  Age: 570 Month
  Sex: Female
  Weight: 80.7 kg

DRUGS (28)
  1. SEROQUEL [Suspect]
     Indication: POST-TRAUMATIC STRESS DISORDER
     Dosage: 100-300 MG
     Route: 048
     Dates: start: 20010104
  2. SEROQUEL [Suspect]
     Indication: DEPRESSION
     Dosage: 100-300 MG
     Route: 048
     Dates: start: 20010104
  3. SEROQUEL [Suspect]
     Indication: INSOMNIA
     Dosage: 100-300 MG
     Route: 048
     Dates: start: 20010104
  4. SEROQUEL [Suspect]
     Dosage: 100-150 MG
     Route: 048
     Dates: start: 20020101, end: 20040101
  5. SEROQUEL [Suspect]
     Dosage: 100-150 MG
     Route: 048
     Dates: start: 20020101, end: 20040101
  6. SEROQUEL [Suspect]
     Dosage: 100-150 MG
     Route: 048
     Dates: start: 20020101, end: 20040101
  7. SEROQUEL [Suspect]
     Route: 048
     Dates: start: 20040101, end: 20060101
  8. SEROQUEL [Suspect]
     Route: 048
     Dates: start: 20040101, end: 20060101
  9. SEROQUEL [Suspect]
     Route: 048
     Dates: start: 20040101, end: 20060101
  10. CLOZARIL [Concomitant]
  11. HALDOL [Concomitant]
  12. DESYREL [Concomitant]
     Dosage: 100-200 MG
     Route: 048
  13. ZOLOFT [Concomitant]
     Dosage: 50-200 MG
     Route: 048
  14. AMBIEN [Concomitant]
     Route: 048
  15. NEURONTIN [Concomitant]
     Dosage: 300-600 MG
     Route: 048
  16. MOTRIN [Concomitant]
     Route: 048
  17. REMERON [Concomitant]
     Dosage: 15-45 MG
     Route: 048
  18. SUSTIVA [Concomitant]
     Dosage: 200-600 MG
     Route: 048
  19. NYSTATIN [Concomitant]
  20. FLAGYL [Concomitant]
     Route: 048
  21. LAMIVUDINE [Concomitant]
     Route: 048
  22. DAPSONE [Concomitant]
     Dosage: 10-100 MG
     Route: 048
  23. DIFLUCAN [Concomitant]
     Dosage: 100-200 MG
     Route: 048
  24. RITONAVIR [Concomitant]
     Route: 048
  25. CLOBETASOL PROPIONATE [Concomitant]
     Route: 061
  26. PREGABALIN [Concomitant]
     Route: 048
  27. ADVAIR HFA [Concomitant]
  28. ALBUTEROL [Concomitant]
     Dosage: 2.5 MG/3ML

REACTIONS (1)
  - PANCREATITIS [None]
